FAERS Safety Report 15868084 (Version 5)
Quarter: 2020Q2

REPORT INFORMATION
  Report Type: Spontaneous
  Country: US (occurrence: US)
  Receive Date: 20190125
  Receipt Date: 20200401
  Transmission Date: 20200713
  Serious: No
  Sender: FDA-Public Use
  Company Number: US-SPARK THERAPEUTICS, INC.-US-SPK-19-00002

PATIENT
  Age: 6 Year
  Sex: Male
  Weight: 25.5 kg

DRUGS (4)
  1. LUXTURNA [Suspect]
     Active Substance: VORETIGENE NEPARVOVEC-RZYL
     Indication: RETINAL DYSTROPHY
     Dates: start: 20190109, end: 20190109
  2. LUXTURNA [Suspect]
     Active Substance: VORETIGENE NEPARVOVEC-RZYL
     Dates: start: 20190131, end: 20190131
  3. LUXTURNA [Suspect]
     Active Substance: VORETIGENE NEPARVOVEC-RZYL
     Dosage: IN THE RIGHT EYE (OD)
     Route: 031
     Dates: start: 20190131, end: 20190131
  4. LUXTURNA [Suspect]
     Active Substance: VORETIGENE NEPARVOVEC-RZYL
     Indication: RETINAL DYSTROPHY
     Dosage: IN THE LEFT EYE (OS)
     Route: 031
     Dates: start: 20190109, end: 20190109

REACTIONS (11)
  - Intraocular pressure increased [Recovered/Resolved]
  - Cataract subcapsular [Not Recovered/Not Resolved]
  - Lenticular opacities [Not Recovered/Not Resolved]
  - Conjunctival haemorrhage [Recovered/Resolved]
  - Intraocular pressure increased [Recovered/Resolved]
  - Anterior chamber cell [Recovered/Resolved]
  - Intraocular pressure increased [Recovering/Resolving]
  - Conjunctival haemorrhage [Recovered/Resolved]
  - Anterior chamber cell [Recovered/Resolved]
  - Vitreal cells [Recovered/Resolved]
  - Vitreal cells [Recovered/Resolved]

NARRATIVE: CASE EVENT DATE: 20190110
